FAERS Safety Report 21653940 (Version 1)
Quarter: 2022Q4

REPORT INFORMATION
  Report Type: Other
  Country: GB (occurrence: GB)
  Receive Date: 20221129
  Receipt Date: 20221129
  Transmission Date: 20230112
  Serious: Yes (Other)
  Sender: FDA-Public Use
  Company Number: None

PATIENT

DRUGS (15)
  1. METFORMIN HYDROCHLORIDE [Suspect]
     Active Substance: METFORMIN HYDROCHLORIDE
     Indication: Product used for unknown indication
     Dosage: 500 MILLIGRAM, QD,  AT TEATIME
     Route: 065
     Dates: start: 20220929
  2. AMITRIPTYLINE HYDROCHLORIDE [Concomitant]
     Active Substance: AMITRIPTYLINE HYDROCHLORIDE
     Indication: Product used for unknown indication
     Dosage: 2 DOSAGE FORM, QD AT NIGHT
     Route: 065
     Dates: start: 20200203
  3. AMLODIPINE [Concomitant]
     Active Substance: AMLODIPINE BESYLATE
     Indication: Product used for unknown indication
     Dosage: 1 DOSAGE FORM, QD
     Route: 065
     Dates: start: 20200203
  4. ATORVASTATIN [Concomitant]
     Active Substance: ATORVASTATIN
     Indication: Product used for unknown indication
     Dosage: 1 DOSAGE FORM, QD
     Route: 065
     Dates: start: 20200203
  5. CALCIUM\CHOLECALCIFEROL [Concomitant]
     Active Substance: CALCIUM\CHOLECALCIFEROL
     Indication: Product used for unknown indication
     Dosage: 1 DOSAGE FORM, BID SUCK OR CHEW TABLET
     Route: 065
     Dates: start: 20200203
  6. FEXOFENADINE [Concomitant]
     Active Substance: FEXOFENADINE HYDROCHLORIDE
     Indication: Product used for unknown indication
     Dosage: 2 DOSAGE FORM, QD
     Route: 065
     Dates: start: 20200203
  7. FUROSEMIDE [Concomitant]
     Active Substance: FUROSEMIDE
     Indication: Product used for unknown indication
     Dosage: 1 DOSAGE FORM, QD IN THE MORNING
     Route: 065
     Dates: start: 20200203
  8. EPINEPHRINE BITARTRATE [Concomitant]
     Active Substance: EPINEPHRINE BITARTRATE
     Indication: Product used for unknown indication
     Dosage: USE AS DIRECTED
     Route: 065
     Dates: start: 20221103
  9. MONTELUKAST [Concomitant]
     Active Substance: MONTELUKAST SODIUM
     Indication: Product used for unknown indication
     Dosage: 1 DOSAGE FORM, QD AT NIGHT
     Route: 065
     Dates: start: 20210817
  10. OILATUM [Concomitant]
     Indication: Product used for unknown indication
     Dosage: APPLY AS NEEDED (THIS REPLACES E45)
     Route: 065
     Dates: start: 20200203
  11. PREDNISOLONE [Concomitant]
     Active Substance: PREDNISOLONE
     Indication: Product used for unknown indication
     Dosage: 6 DOSAGE FORM, STAT WHEN ONSET OF ATTACK.
     Route: 065
     Dates: start: 20200203
  12. RISEDRONATE SODIUM [Concomitant]
     Active Substance: RISEDRONATE SODIUM
     Indication: Product used for unknown indication
     Dosage: 1 DOSAGE FORM, QD SWALLOW WHOLE WITH PLENTY OF ...
     Route: 065
     Dates: start: 20200203
  13. SYMBICORT [Concomitant]
     Active Substance: BUDESONIDE\FORMOTEROL FUMARATE DIHYDRATE
     Indication: Product used for unknown indication
     Dosage: 1 DOSAGE FORM, BID PUFF
     Route: 065
     Dates: start: 20210817
  14. TIOTROPIUM [Concomitant]
     Active Substance: TIOTROPIUM
     Indication: Product used for unknown indication
     Dosage: 2 DOSAGE FORM, QD PUFFS
     Route: 065
     Dates: start: 20210817
  15. VENTOLIN [Concomitant]
     Active Substance: ALBUTEROL SULFATE
     Indication: Product used for unknown indication
     Dosage: 2 DOSAGE FORM, 4 HOURLY IF NEEDED (MAX 8 PUFFS IN 24 H...
     Route: 065
     Dates: start: 20210817

REACTIONS (6)
  - Pruritus [Recovering/Resolving]
  - Eye swelling [Recovering/Resolving]
  - Urticaria [Recovering/Resolving]
  - Peripheral swelling [Recovering/Resolving]
  - Angioedema [Recovering/Resolving]
  - Rash [Recovering/Resolving]
